FAERS Safety Report 7806932-6 (Version None)
Quarter: 2011Q4

REPORT INFORMATION
  Report Type: 
  Country: None (occurrence: None)
  Receive Date: 20111011
  Receipt Date: 20110729
  Transmission Date: 20120403
  Serious: No
  Sender: FDA-Public Use
  Company Number: US-MYLANLABS-2011S1015885

PATIENT
  Sex: Female

DRUGS (1)
  1. LATANOPROST [Suspect]
     Route: 047

REACTIONS (1)
  - VISION BLURRED [None]
